FAERS Safety Report 18017630 (Version 2)
Quarter: 2020Q3

REPORT INFORMATION
  Report Type: Spontaneous
  Country: US (occurrence: US)
  Receive Date: 20200713
  Receipt Date: 20200904
  Transmission Date: 20201103
  Serious: Yes (Other)
  Sender: FDA-Public Use
  Company Number: US-BAYER-2020-137114

PATIENT
  Age: 38 Year
  Sex: Male

DRUGS (3)
  1. KOGENATE FS [Suspect]
     Active Substance: ANTIHEMOPHILIC FACTOR, HUMAN RECOMBINANT
     Dosage: 3673 U, ONCE (1 DOSE TO TREAT THE BLEED IN HIS RIGHT HAND)
     Dates: start: 202004, end: 202004
  2. KOGENATE FS [Suspect]
     Active Substance: ANTIHEMOPHILIC FACTOR, HUMAN RECOMBINANT
     Dosage: 3673 U, ONCE (1 DOSE TO TREAT THE FACIAL TRAUMA)
  3. KOGENATE FS [Suspect]
     Active Substance: ANTIHEMOPHILIC FACTOR, HUMAN RECOMBINANT
     Dosage: 3673 U, UNK
     Route: 042

REACTIONS (2)
  - Haemorrhage [None]
  - Face injury [None]

NARRATIVE: CASE EVENT DATE: 202004
